FAERS Safety Report 15772349 (Version 8)
Quarter: 2019Q2

REPORT INFORMATION
  Report Type: Report from Study
  Country: US (occurrence: US)
  Receive Date: 20181228
  Receipt Date: 20190429
  Transmission Date: 20190711
  Serious: Yes (Hospitalization, Other)
  Sender: FDA-Public Use
  Company Number: US-GILEAD-2018-0382337

PATIENT
  Age: 59 Year
  Sex: Female
  Weight: 64.3 kg

DRUGS (13)
  1. SINGULAIR [Concomitant]
     Active Substance: MONTELUKAST SODIUM
  2. SYMBICORT [Concomitant]
     Active Substance: BUDESONIDE\FORMOTEROL FUMARATE DIHYDRATE
  3. DUONEB [Concomitant]
     Active Substance: ALBUTEROL SULFATE\IPRATROPIUM BROMIDE
  4. REVATIO [Concomitant]
     Active Substance: SILDENAFIL CITRATE
  5. LASIX [Concomitant]
     Active Substance: FUROSEMIDE
  6. LAMICTAL [Concomitant]
     Active Substance: LAMOTRIGINE
  7. COSIG [Concomitant]
  8. SPIRIVA [Concomitant]
     Active Substance: TIOTROPIUM BROMIDE MONOHYDRATE
  9. AMBRISENTAN [Suspect]
     Active Substance: AMBRISENTAN
     Indication: PULMONARY ARTERIAL HYPERTENSION
     Dosage: 5 MG, QD
     Route: 065
     Dates: start: 20181220, end: 201903
  10. ASPIRINA FABRA [ACETYLSALICYLIC ACID] [Concomitant]
  11. DERMADEX [FLUOCINONIDE] [Concomitant]
  12. PROAIR [FLUTICASONE PROPIONATE] [Concomitant]
     Active Substance: FLUTICASONE PROPIONATE
  13. PRILOSEC [Concomitant]
     Active Substance: OMEPRAZOLE MAGNESIUM

REACTIONS (11)
  - Oedema [Unknown]
  - Fatigue [Recovered/Resolved]
  - Cardiac failure congestive [Recovered/Resolved]
  - Blood pressure increased [Not Recovered/Not Resolved]
  - Oxygen saturation decreased [Not Recovered/Not Resolved]
  - Dyspnoea [Not Recovered/Not Resolved]
  - Pleural effusion [Unknown]
  - Fluid retention [Unknown]
  - Drug ineffective [Unknown]
  - Fluid overload [Recovering/Resolving]
  - Dyspnoea [Recovered/Resolved]

NARRATIVE: CASE EVENT DATE: 20181226
